FAERS Safety Report 5967691-5 (Version None)
Quarter: 2008Q4

REPORT INFORMATION
  Report Type: 
  Country: None (occurrence: None)
  Receive Date: 20081126
  Receipt Date: 20081121
  Transmission Date: 20090506
  Serious: Yes (Death, Other)
  Sender: FDA-Public Use
  Company Number: PHMT2007CA01064

PATIENT
  Sex: Male

DRUGS (6)
  1. CLOZARIL [Suspect]
     Indication: SCHIZOPHRENIA, PARANOID TYPE
     Dosage: 400 MG, QD
     Route: 048
     Dates: start: 20050401, end: 20070329
  2. CELEXA [Concomitant]
     Dosage: 40 MG, QD
     Route: 048
     Dates: start: 20030702, end: 20070329
  3. CITALOPRAM HYDROBROMIDE [Concomitant]
     Dosage: 40 MG DAILY
  4. BENZTROPEINE [Concomitant]
     Dosage: 3 MG DAILY
  5. BENZTROPEINE [Concomitant]
     Dosage: 1 MG DAILY
  6. RISPERIDONE [Concomitant]
     Dosage: 3 MG DAILY

REACTIONS (19)
  - BLOOD CHOLESTEROL INCREASED [None]
  - CARDIOMYOPATHY [None]
  - CONSTIPATION [None]
  - COUGH [None]
  - CYANOSIS [None]
  - DIARRHOEA [None]
  - DILATATION VENTRICULAR [None]
  - DRUG TOXICITY [None]
  - DYSPNOEA [None]
  - ERUCTATION [None]
  - GASTROENTERITIS [None]
  - LIPOMATOSIS [None]
  - PETECHIAE [None]
  - PULMONARY CONGESTION [None]
  - PULMONARY OEDEMA [None]
  - SUDDEN DEATH [None]
  - VENTRICULAR ARRHYTHMIA [None]
  - VOMITING [None]
  - WHITE BLOOD CELL COUNT INCREASED [None]
